FAERS Safety Report 5956308 (Version 3)
Quarter: 2016Q1

REPORT INFORMATION
  Report Type: Spontaneous
  Country: NO (occurrence: NO)
  Receive Date: 20060106
  Receipt Date: 20160310
  Transmission Date: 20160526
  Serious: Yes (Other)
  Sender: FDA-Public Use
  Company Number: NO-GLAXOSMITHKLINE-B0405571A

PATIENT
  Sex: Female

DRUGS (13)
  1. AIROMIR [Concomitant]
     Active Substance: ALBUTEROL SULFATE
  2. PREDNISOLONE. [Concomitant]
     Active Substance: PREDNISOLONE
  3. NUELIN [Concomitant]
  4. VENTOLIN [Concomitant]
     Active Substance: ALBUTEROL SULFATE
  5. LIVOSTIN [Concomitant]
     Active Substance: LEVOCABASTINE HYDROCHLORIDE
  6. FLUTIDE [Concomitant]
     Active Substance: FLUTICASONE PROPIONATE
     Route: 055
  7. LOMUDAL [Concomitant]
  8. NASACORT [Concomitant]
     Active Substance: TRIAMCINOLONE ACETONIDE
  9. CLARITIN [Concomitant]
     Active Substance: LORATADINE
  10. ATROVENT [Concomitant]
     Active Substance: IPRATROPIUM BROMIDE
  11. SINGULAIR [Concomitant]
     Active Substance: MONTELUKAST SODIUM
  12. FLUTIDE [Suspect]
     Active Substance: FLUTICASONE PROPIONATE
     Indication: PRODUCT USED FOR UNKNOWN INDICATION
     Route: 065
     Dates: start: 2000, end: 2002
  13. AEROBEC [Concomitant]

REACTIONS (1)
  - Nasal septum perforation [Unknown]
